FAERS Safety Report 9143110 (Version 1)
Quarter: 2013Q1

REPORT INFORMATION
  Report Type: Spontaneous
  Country: None (occurrence: US)
  Receive Date: 20130306
  Receipt Date: 20130306
  Transmission Date: 20140127
  Serious: No
  Sender: FDA-Public Use
  Company Number: US-TEVA-389815USA

PATIENT
  Sex: Female

DRUGS (1)
  1. PROAIR HFA [Suspect]

REACTIONS (1)
  - Adverse event [Unknown]
